FAERS Safety Report 5602524-8 (Version None)
Quarter: 2008Q1

REPORT INFORMATION
  Report Type: 
  Country: None (occurrence: None)
  Receive Date: 20080125
  Receipt Date: 20080121
  Transmission Date: 20080703
  Serious: Yes (Hospitalization)
  Sender: FDA-Public Use
  Company Number: B0501877B

PATIENT
  Age: 68 Year
  Sex: Female
  Weight: 57 kg

DRUGS (2)
  1. TOPOTECAN [Suspect]
     Dosage: 4MGM2 WEEKLY
     Route: 042
     Dates: start: 20071204
  2. LACTULOSE [Concomitant]
     Dosage: 10ML PER DAY
     Route: 048
     Dates: start: 20080107

REACTIONS (1)
  - FAECALOMA [None]
